FAERS Safety Report 5427666-1 (Version None)
Quarter: 2007Q3

REPORT INFORMATION
  Report Type: 
  Country: None (occurrence: None)
  Receive Date: 20070823
  Receipt Date: 20070811
  Transmission Date: 20080115
  Serious: Yes (Hospitalization)
  Sender: FDA-Public Use
  Company Number: 2007BI016976

PATIENT
  Age: 59 Year
  Sex: Female
  Weight: 66.6788 kg

DRUGS (3)
  1. AVONEX [Suspect]
     Indication: MULTIPLE SCLEROSIS
     Dosage: 15 UG; QW; IM
     Route: 030
     Dates: start: 20070803
  2. PROPZAC [Concomitant]
  3. TRAZODONE HCL [Concomitant]

REACTIONS (4)
  - CONFUSIONAL STATE [None]
  - DEHYDRATION [None]
  - FEELING ABNORMAL [None]
  - VISION BLURRED [None]
